FAERS Safety Report 6530939-2 (Version None)
Quarter: 2010Q1

REPORT INFORMATION
  Report Type: 
  Country: None (occurrence: None)
  Receive Date: 20100108
  Receipt Date: 20090616
  Transmission Date: 20100710
  Serious: No
  Sender: FDA-Public Use
  Company Number: A0793117A

PATIENT
  Age: 64 Year
  Sex: Female

DRUGS (5)
  1. LOVAZA [Suspect]
     Dosage: 4U FOUR TIMES PER DAY
     Route: 048
     Dates: start: 20090604
  2. COREG [Concomitant]
  3. CRESTOR [Concomitant]
  4. GLUCOVANCE [Concomitant]
  5. ASPIRIN [Concomitant]

REACTIONS (1)
  - URINARY TRACT INFECTION [None]
